FAERS Safety Report 7395081-X (Version None)
Quarter: 2011Q1

REPORT INFORMATION
  Report Type: 
  Country: None (occurrence: None)
  Receive Date: 20110325
  Receipt Date: 20110316
  Transmission Date: 20110831
  Serious: Yes (Hospitalization, Other)
  Sender: FDA-Public Use
  Company Number: 029519

PATIENT
  Sex: Male

DRUGS (3)
  1. XYZAL [Suspect]
     Indication: SEASONAL ALLERGY
     Dosage: (5 MG QD ORAL)
     Route: 048
     Dates: start: 20110307, end: 20110308
  2. CELESTAMINE TAB [Concomitant]
  3. ZEPELIN [Concomitant]

REACTIONS (3)
  - BLOOD GLUCOSE INCREASED [None]
  - FALL [None]
  - HYPOKALAEMIA [None]
